FAERS Safety Report 9970214 (Version 1)
Quarter: 2014Q1

REPORT INFORMATION
  Report Type: Spontaneous
  Country: US (occurrence: US)
  Receive Date: 20140306
  Receipt Date: 20140306
  Transmission Date: 20141002
  Serious: Yes (Death, Hospitalization, Other)
  Sender: FDA-Public Use
  Company Number: US-TEVA-466132USA

PATIENT
  Age: 64 Year
  Sex: Female

DRUGS (1)
  1. COPAXONE [Suspect]
     Indication: MULTIPLE SCLEROSIS
     Dates: start: 19980414, end: 20140122

REACTIONS (6)
  - Sepsis [Fatal]
  - Clostridium difficile infection [Fatal]
  - Catheter site abscess [Unknown]
  - Urosepsis [Unknown]
  - Pelvic fluid collection [Unknown]
  - Abdominal pain [Unknown]
